FAERS Safety Report 9236517 (Version 1)
Quarter: 2013Q2

REPORT INFORMATION
  Report Type: Spontaneous
  Country: US (occurrence: US)
  Receive Date: 20130417
  Receipt Date: 20130417
  Transmission Date: 20140414
  Serious: No
  Sender: FDA-Public Use
  Company Number: US-ASTRAZENECA-2013SE21299

PATIENT
  Age: 83 Year
  Sex: Male
  Weight: 54.4 kg

DRUGS (6)
  1. BRILINTA [Suspect]
     Indication: MYOCARDIAL INFARCTION
     Route: 048
     Dates: start: 20120413
  2. BRILINTA [Suspect]
     Indication: STENT PLACEMENT
     Route: 048
     Dates: start: 20120413
  3. ASPIRIN [Suspect]
     Route: 065
  4. COREG [Concomitant]
     Indication: HEART RATE IRREGULAR
  5. SYNTHROID [Concomitant]
     Indication: THYROID DISORDER
     Dosage: 75 MCG DAILY
  6. VITAMINS [Concomitant]

REACTIONS (6)
  - Dyspnoea [Unknown]
  - Night sweats [Unknown]
  - Cough [Unknown]
  - Interstitial lung disease [Unknown]
  - Blood glucose decreased [Not Recovered/Not Resolved]
  - Prostatic specific antigen increased [Not Recovered/Not Resolved]
